FAERS Safety Report 21945895 (Version 2)
Quarter: 2023Q2

REPORT INFORMATION
  Report Type: Spontaneous
  Country: US (occurrence: US)
  Receive Date: 20230202
  Receipt Date: 20230504
  Transmission Date: 20230722
  Serious: No
  Sender: FDA-Public Use
  Company Number: US-SANOFI-01468625

PATIENT
  Age: 41 Year
  Sex: Female

DRUGS (2)
  1. TOUJEO MAX [Suspect]
     Active Substance: INSULIN GLARGINE
     Indication: Type 1 diabetes mellitus
     Dosage: 16 U, BID
  2. TOUJEO MAX [Suspect]
     Active Substance: INSULIN GLARGINE
     Dosage: UNK, QD (14-16 UNITS QD AND DRUG TREATMENT DURATION:ABOUT A YEAR)
     Dates: start: 2022

REACTIONS (1)
  - Inappropriate schedule of product administration [Unknown]
